FAERS Safety Report 23356409 (Version 1)
Quarter: 2024Q1

REPORT INFORMATION
  Report Type: Spontaneous
  Country: CA (occurrence: None)
  Receive Date: 20240102
  Receipt Date: 20240102
  Transmission Date: 20240409
  Serious: Yes (Death, Hospitalization)
  Sender: FDA-Public Use
  Company Number: CA-ROCHE-3483705

PATIENT
  Age: 57 Year
  Sex: Male

DRUGS (4)
  1. RITUXIMAB [Suspect]
     Active Substance: RITUXIMAB
     Indication: Graft versus host disease
     Route: 065
  2. MYCOPHENOLATE MOFETIL [Concomitant]
     Active Substance: MYCOPHENOLATE MOFETIL
     Route: 065
  3. RUXOLITINIB [Concomitant]
     Active Substance: RUXOLITINIB
     Route: 065
  4. SIROLIMUS [Concomitant]
     Active Substance: SIROLIMUS

REACTIONS (5)
  - Graft versus host disease [Fatal]
  - Immune-mediated renal disorder [Fatal]
  - Off label use [Fatal]
  - Polyomavirus-associated nephropathy [Fatal]
  - Thrombotic microangiopathy [Fatal]
